FAERS Safety Report 8112268-9 (Version None)
Quarter: 2012Q1

REPORT INFORMATION
  Report Type: 
  Country: None (occurrence: None)
  Receive Date: 20120203
  Receipt Date: 20120131
  Transmission Date: 20120608
  Serious: Yes (Hospitalization)
  Sender: FDA-Public Use
  Company Number: DE-PFIZER INC-2012025739

PATIENT
  Sex: Male

DRUGS (1)
  1. AMLODIPINE BESYLATE [Suspect]
     Dosage: 100 MG, SINGLE

REACTIONS (4)
  - OVERDOSE [None]
  - BUNDLE BRANCH BLOCK [None]
  - BRADYCARDIA [None]
  - TACHYCARDIA [None]
